FAERS Safety Report 6834097-6 (Version None)
Quarter: 2010Q3

REPORT INFORMATION
  Report Type: 
  Country: None (occurrence: None)
  Receive Date: 20100712
  Receipt Date: 20070413
  Transmission Date: 20110219
  Serious: No
  Sender: FDA-Public Use
  Company Number: US-PFIZER INC-2007030684

PATIENT
  Sex: Female
  Weight: 61.3 kg

DRUGS (5)
  1. CHANTIX [Suspect]
     Indication: SMOKING CESSATION THERAPY
     Dosage: INTERVAL: EVERY DAY
     Dates: start: 20070403
  2. CYMBALTA [Concomitant]
  3. WARFARIN SODIUM [Concomitant]
  4. VITAMINS [Concomitant]
  5. DRUG, UNSPECIFIED [Concomitant]

REACTIONS (6)
  - FATIGUE [None]
  - FOOD CRAVING [None]
  - GASTRIC DISORDER [None]
  - INCREASED APPETITE [None]
  - NAUSEA [None]
  - WEIGHT INCREASED [None]
